FAERS Safety Report 9575243 (Version 1)
Quarter: 2013Q4

REPORT INFORMATION
  Report Type: Spontaneous
  Country: JP (occurrence: JP)
  Receive Date: 20131001
  Receipt Date: 20131001
  Transmission Date: 20140711
  Serious: Yes (Hospitalization)
  Sender: FDA-Public Use
  Company Number: JP-GLAXOSMITHKLINE-B0702694A

PATIENT
  Age: 45 Year
  Sex: Female

DRUGS (7)
  1. LAMICTAL [Suspect]
     Indication: BIPOLAR I DISORDER
     Dosage: 25MG PER DAY
     Route: 048
     Dates: start: 20101225, end: 20110106
  2. LAMICTAL [Suspect]
     Indication: BIPOLAR I DISORDER
     Dosage: 25MG PER DAY
     Route: 048
     Dates: start: 20110107, end: 20110114
  3. DEPAKENE-R [Suspect]
     Indication: BIPOLAR I DISORDER
     Dosage: 600MG PER DAY
     Route: 048
     Dates: start: 20100903, end: 20110120
  4. LIMAS [Concomitant]
     Indication: BIPOLAR I DISORDER
     Dosage: 200MG TWICE PER DAY
     Route: 048
     Dates: start: 20100818, end: 20110120
  5. ROHYPNOL [Concomitant]
     Indication: INSOMNIA
     Dosage: 5MG PER DAY
     Route: 048
     Dates: start: 20100818, end: 20110123
  6. LEVOTOMIN [Concomitant]
     Indication: INSOMNIA
     Route: 048
     Dates: start: 20100818, end: 20110120
  7. LENDORMIN D [Concomitant]
     Indication: INSOMNIA
     Route: 048
     Dates: start: 20091218, end: 20110123

REACTIONS (4)
  - Drug eruption [Recovered/Resolved]
  - Oculomucocutaneous syndrome [Recovering/Resolving]
  - Toxic epidermal necrolysis [Unknown]
  - Rash [Unknown]
